FAERS Safety Report 15363171 (Version 2)
Quarter: 2018Q4

REPORT INFORMATION
  Report Type: Spontaneous
  Country: GB (occurrence: GB)
  Receive Date: 20180907
  Receipt Date: 20181121
  Transmission Date: 20190204
  Serious: Yes (Life-Threatening, Hospitalization, Other)
  Sender: FDA-Public Use
  Company Number: GB-NOVOPROD-619671

PATIENT
  Age: 21 Year
  Sex: Male
  Weight: 64 kg

DRUGS (7)
  1. TRESIBA [Concomitant]
     Active Substance: INSULIN DEGLUDEC
     Indication: TYPE 1 DIABETES MELLITUS
     Dosage: 48 U, QD
     Route: 058
     Dates: start: 20170701
  2. PAROXETINE. [Concomitant]
     Active Substance: PAROXETINE
     Indication: DEPRESSION
     Dosage: 40 MG, QD
     Route: 048
     Dates: start: 20180918
  3. FIASP [Suspect]
     Active Substance: INSULIN ASPART
     Dosage: UNK
     Route: 058
  4. FIASP [Suspect]
     Active Substance: INSULIN ASPART
     Indication: TYPE 1 DIABETES MELLITUS
     Dosage: 2 UNITS: 10G CARBS.
     Route: 058
  5. FIASP [Suspect]
     Active Substance: INSULIN ASPART
     Dosage: UNK OVERDOSE
     Route: 058
  6. FIASP [Suspect]
     Active Substance: INSULIN ASPART
     Dosage: 300 UNITS
     Route: 058
  7. ATORVASTATIN [Concomitant]
     Active Substance: ATORVASTATIN
     Indication: PROPHYLAXIS
     Dosage: 40 MG, QD
     Route: 048
     Dates: start: 20180309

REACTIONS (6)
  - Depression [Not Recovered/Not Resolved]
  - Hypoglycaemic unconsciousness [Recovered/Resolved]
  - Intentional overdose [Unknown]
  - Suicide attempt [Unknown]
  - Suicide attempt [Unknown]
  - Intentional overdose [Unknown]

NARRATIVE: CASE EVENT DATE: 20180826
